FAERS Safety Report 9275383 (Version 1)
Quarter: 2013Q2

REPORT INFORMATION
  Report Type: Spontaneous
  Country: US (occurrence: None)
  Receive Date: 20130501
  Receipt Date: 20130501
  Transmission Date: 20140414
  Serious: Yes (Disabling, Other)
  Sender: FDA-Public Use
  Company Number: None

PATIENT
  Age: 57 Year
  Sex: Female
  Weight: 61.24 kg

DRUGS (1)
  1. SERTRALINE HCL [Suspect]
     Indication: ANXIETY
     Route: 048
     Dates: start: 20110930, end: 20111006

REACTIONS (5)
  - Decreased appetite [None]
  - Abdominal distension [None]
  - Asthenia [None]
  - Feeling abnormal [None]
  - Activities of daily living impaired [None]
